FAERS Safety Report 25426880 (Version 1)
Quarter: 2025Q2

REPORT INFORMATION
  Report Type: Report from Study
  Country: CA (occurrence: CA)
  Receive Date: 20250612
  Receipt Date: 20250612
  Transmission Date: 20250717
  Serious: Yes (Other)
  Sender: BAUSCH AND LOMB
  Company Number: CA-BAUSCH-BL-2024-003607

PATIENT
  Age: 56 Year
  Sex: Female

DRUGS (2)
  1. SILIQ [Suspect]
     Active Substance: BRODALUMAB
     Indication: Psoriasis
     Dosage: 210 MG/1.5ML, WEEKLY (WEEK 0,1 AND 2)
     Route: 058
     Dates: start: 20201224, end: 202101
  2. SILIQ [Suspect]
     Active Substance: BRODALUMAB
     Dosage: 210 MG/1.5ML, Q2 WEEKS
     Route: 058
     Dates: start: 202101

REACTIONS (4)
  - Psoriatic arthropathy [Not Recovered/Not Resolved]
  - Psoriasis [Not Recovered/Not Resolved]
  - Rash [Not Recovered/Not Resolved]
  - Ill-defined disorder [Unknown]

NARRATIVE: CASE EVENT DATE: 20240101
